FAERS Safety Report 9868461 (Version 2)
Quarter: 2014Q1

REPORT INFORMATION
  Report Type: Spontaneous
  Country: US (occurrence: US)
  Receive Date: 20140204
  Receipt Date: 20140213
  Transmission Date: 20141002
  Serious: Yes (Hospitalization, Other)
  Sender: FDA-Public Use
  Company Number: US-B.I. PHARMACEUTICALS,INC./RIDGEFIELD-2014-BI-04473BP

PATIENT
  Age: 62 Year
  Sex: Male
  Weight: 88.9 kg

DRUGS (6)
  1. PRADAXA [Suspect]
     Indication: ATRIAL FIBRILLATION
     Dosage: 300 MG
     Dates: start: 201310, end: 20140129
  2. WELLBUTRIN 150 MG HS [Concomitant]
     Indication: DEPRESSION
  3. FLECAINIDE 50 MG [Concomitant]
     Indication: ATRIAL FIBRILLATION
     Dosage: 100 MG
  4. METOPROLOL TARTRATE 50 MG [Concomitant]
     Indication: ATRIAL FIBRILLATION
     Dosage: 100 MG
  5. AMBIEN 5 MG [Concomitant]
     Indication: SLEEP APNOEA SYNDROME
  6. DENTAL DEVICE [Concomitant]
     Indication: SLEEP APNOEA SYNDROME

REACTIONS (1)
  - Transient ischaemic attack [Recovered/Resolved]
